FAERS Safety Report 12138203 (Version 2)
Quarter: 2016Q1

REPORT INFORMATION
  Report Type: Spontaneous
  Country: FR (occurrence: FR)
  Receive Date: 20160302
  Receipt Date: 20160323
  Transmission Date: 20160526
  Serious: Yes (Other)
  Sender: FDA-Public Use
  Company Number: FR-BAYER-2015-440955

PATIENT
  Age: 36 Year
  Sex: Female
  Weight: 92 kg

DRUGS (1)
  1. MIRENA [Suspect]
     Active Substance: LEVONORGESTREL
     Indication: CONTRACEPTION
     Dosage: 20 MCG/24HR, CONT
     Route: 015
     Dates: start: 20130605

REACTIONS (5)
  - Sinus tachycardia [None]
  - Peritoneal haemorrhage [None]
  - Ectopic pregnancy with contraceptive device [None]
  - Drug ineffective [None]
  - Amenorrhoea [None]
